FAERS Safety Report 14540787 (Version 1)
Quarter: 2018Q1

REPORT INFORMATION
  Report Type: Spontaneous
  Country: CZ (occurrence: CZ)
  Receive Date: 20180216
  Receipt Date: 20180216
  Transmission Date: 20180509
  Serious: Yes (Life-Threatening, Hospitalization, Disabling, Other)
  Sender: FDA-Public Use
  Company Number: CZ-OTSUKA-KJ20051527

PATIENT
  Age: 17 Year
  Sex: Female

DRUGS (4)
  1. ABILIFY [Interacting]
     Active Substance: ARIPIPRAZOLE
     Dosage: 10 MG, UNK
     Route: 048
  2. OLANZAPINE. [Interacting]
     Active Substance: OLANZAPINE
     Indication: SCHIZOPHRENIA
     Dosage: 30 MG, UNK
     Route: 048
     Dates: start: 20050708, end: 20050822
  3. ABILIFY [Suspect]
     Active Substance: ARIPIPRAZOLE
     Indication: SCHIZOPHRENIA
     Dosage: 5 MG, UNK
     Route: 048
     Dates: start: 20050802
  4. OLANZAPINE. [Interacting]
     Active Substance: OLANZAPINE
     Dosage: 5 MG, UNK
     Route: 048
     Dates: start: 20050708

REACTIONS (5)
  - Epilepsy [Unknown]
  - Drug interaction [Unknown]
  - Medication error [Unknown]
  - Areflexia [Recovering/Resolving]
  - Coma [Recovering/Resolving]

NARRATIVE: CASE EVENT DATE: 20050822
